FAERS Safety Report 5818599-7 (Version None)
Quarter: 2008Q3

REPORT INFORMATION
  Report Type: 
  Country: None (occurrence: None)
  Receive Date: 20080722
  Receipt Date: 20080714
  Transmission Date: 20090109
  Serious: Yes (Hospitalization)
  Sender: FDA-Public Use
  Company Number: GB-ELI_LILLY_AND_COMPANY-GB200801003126

PATIENT
  Sex: Female
  Weight: 111.6 kg

DRUGS (14)
  1. BYETTA [Suspect]
     Indication: TYPE 2 DIABETES MELLITUS
     Dosage: 5 UG, UNKNOWN
     Route: 058
     Dates: start: 20071101, end: 20080115
  2. LANTUS [Concomitant]
     Indication: DIABETES MELLITUS
     Dosage: 38 IU, EACH MORNING
     Route: 058
     Dates: start: 20060926
  3. LANTUS [Concomitant]
     Dosage: 34 IU, EACH EVENING
     Route: 058
  4. ASPIRIN [Concomitant]
     Indication: ANTIPLATELET THERAPY
     Dosage: 75 MG, UNK
     Route: 048
     Dates: start: 20060105, end: 20080107
  5. ASPIRIN [Concomitant]
     Dosage: 100 MG, EACH MORNING AS PART OF THE PERFORM TRIAL ALONG WITH TERUTROBAN)
  6. DIPYRIDAMOLE [Concomitant]
     Indication: ANTIPLATELET THERAPY
     Dosage: 200 MG, 2/D
     Route: 048
     Dates: start: 20080310
  7. SIMVASTATIN [Concomitant]
     Indication: HYPERLIPIDAEMIA
     Dosage: 40 MG, EACH EVENING
     Route: 048
     Dates: start: 20060105
  8. BISOPROLOL FUMARATE [Concomitant]
     Indication: HYPERTENSION
     Dosage: 2.5 MG, 2/D
     Route: 048
     Dates: start: 20080310
  9. OMEPRAZOLE [Concomitant]
     Indication: GASTROOESOPHAGEAL REFLUX DISEASE
     Dosage: 20 MG, EACH MORNING
     Route: 048
     Dates: start: 20080310
  10. CLOPIDOGREL [Concomitant]
     Indication: ANTIPLATELET THERAPY
     Dosage: 75 MG, UNK
     Route: 048
     Dates: start: 20061201, end: 20080107
  11. RAMIPRIL [Concomitant]
     Indication: HYPERTENSION
     Dosage: 5 MG, UNK
     Route: 048
     Dates: start: 20030617, end: 20080116
  12. TOLBUTAMIDE [Concomitant]
     Indication: DIABETES MELLITUS
     Dates: start: 20060926, end: 20080107
  13. MIXTARD HUMAN 70/30 [Concomitant]
     Dosage: 1 IU, UNK (100 UNITS IN 1 ML DIS)
     Route: 058
  14. VISCOTEARS [Concomitant]
     Dosage: UNK, UNK (WHEN REQUIRED)

REACTIONS (3)
  - CEREBROVASCULAR ACCIDENT [None]
  - RENAL IMPAIRMENT [None]
  - URINARY TRACT INFECTION [None]
